FAERS Safety Report 17175947 (Version 1)
Quarter: 2019Q4

REPORT INFORMATION
  Report Type: Spontaneous
  Country: CA (occurrence: CA)
  Receive Date: 20191219
  Receipt Date: 20191219
  Transmission Date: 20200122
  Serious: Yes (Other)
  Sender: FDA-Public Use
  Company Number: CA-ROCHE-2497014

PATIENT
  Age: 44 Year
  Sex: Female

DRUGS (16)
  1. DIAZEPAM. [Suspect]
     Active Substance: DIAZEPAM
     Indication: SEASONAL AFFECTIVE DISORDER
     Route: 065
  2. ABILIFY [Suspect]
     Active Substance: ARIPIPRAZOLE
     Indication: DEPRESSION
     Route: 065
  3. RISPERIDONE. [Suspect]
     Active Substance: RISPERIDONE
     Indication: SEASONAL AFFECTIVE DISORDER
     Route: 065
  4. RISPERIDONE. [Suspect]
     Active Substance: RISPERIDONE
     Indication: DEPRESSION
  5. ASA [Concomitant]
     Active Substance: ASPIRIN
     Indication: PRODUCT USED FOR UNKNOWN INDICATION
     Route: 065
  6. DIAZEPAM. [Suspect]
     Active Substance: DIAZEPAM
     Indication: ANXIETY
  7. ATORVASTATIN [Concomitant]
     Active Substance: ATORVASTATIN
     Indication: PRODUCT USED FOR UNKNOWN INDICATION
     Route: 065
  8. DETROL [Concomitant]
     Active Substance: TOLTERODINE TARTRATE
     Indication: PRODUCT USED FOR UNKNOWN INDICATION
     Route: 065
  9. DIAZEPAM. [Suspect]
     Active Substance: DIAZEPAM
     Indication: DEPRESSION
  10. RISPERDAL [Suspect]
     Active Substance: RISPERIDONE
     Indication: SEASONAL AFFECTIVE DISORDER
     Route: 065
  11. LIPITOR [Concomitant]
     Active Substance: ATORVASTATIN CALCIUM
     Indication: PRODUCT USED FOR UNKNOWN INDICATION
     Route: 065
  12. ABILIFY [Suspect]
     Active Substance: ARIPIPRAZOLE
     Indication: ANXIETY
  13. RISPERDAL [Suspect]
     Active Substance: RISPERIDONE
     Indication: ANXIETY
  14. RISPERIDONE. [Suspect]
     Active Substance: RISPERIDONE
     Indication: ANXIETY
  15. ABILIFY [Suspect]
     Active Substance: ARIPIPRAZOLE
     Indication: SEASONAL AFFECTIVE DISORDER
     Route: 065
  16. RISPERDAL [Suspect]
     Active Substance: RISPERIDONE
     Indication: DEPRESSION

REACTIONS (11)
  - Diabetes mellitus [Unknown]
  - Increased appetite [Unknown]
  - Fatigue [Unknown]
  - Myocardial infarction [Unknown]
  - Alopecia [Unknown]
  - Impaired work ability [Unknown]
  - Micturition urgency [Unknown]
  - Somnolence [Unknown]
  - Product use in unapproved indication [Unknown]
  - Weight increased [Unknown]
  - Urinary incontinence [Unknown]
